FAERS Safety Report 9748749 (Version 1)
Quarter: 2013Q4

REPORT INFORMATION
  Report Type: Report from Study
  Country: ES (occurrence: ES)
  Receive Date: 20131212
  Receipt Date: 20131212
  Transmission Date: 20140711
  Serious: Yes (Death, Other)
  Sender: FDA-Public Use
  Company Number: ES-VERTEX PHARMACEUTICALS INC-2013-011712

PATIENT
  Sex: 0

DRUGS (3)
  1. INCIVO [Suspect]
     Indication: HEPATITIS C
     Route: 048
  2. RIBAVIRIN [Suspect]
     Indication: HEPATITIS C
     Dosage: DOSAGE FORM: UNSPECIFIED
     Route: 065
  3. INTERFERON [Suspect]
     Indication: HEPATITIS C
     Dosage: DOSAGE FORM: UNSPECIFIED
     Route: 065

REACTIONS (18)
  - Death [Fatal]
  - Fungal infection [Unknown]
  - Tuberculosis [Unknown]
  - Infection [Unknown]
  - Skin disorder [Unknown]
  - Respiratory tract infection [Unknown]
  - Genitourinary tract infection [Unknown]
  - Sepsis [Unknown]
  - Viral infection [Unknown]
  - Condition aggravated [Unknown]
  - Neutropenia [Unknown]
  - Liver transplant rejection [Unknown]
  - Gastrointestinal disorder [Unknown]
  - Anaemia [Unknown]
  - Thrombocytopenia [Unknown]
  - Proctalgia [Unknown]
  - Off label use [Unknown]
  - Viral load increased [Unknown]
